FAERS Safety Report 5333768-0 (Version None)
Quarter: 2007Q2

REPORT INFORMATION
  Report Type: 
  Country: None (occurrence: None)
  Receive Date: 20070308
  Receipt Date: 20070109
  Transmission Date: 20071010
  Serious: No
  Sender: FDA-Public Use
  Company Number: 2006-BP-10975BP

PATIENT
  Age: 65 Year
  Sex: Female
  Weight: 94.8 kg

DRUGS (11)
  1. SPIRIVA [Suspect]
     Indication: CHRONIC OBSTRUCTIVE PULMONARY DISEASE
     Dosage: 18 MCG (18 MCG, 1 IN 1 D), IH
     Route: 055
     Dates: start: 20040101
  2. SPIRIVA [Suspect]
     Indication: EMPHYSEMA
     Dosage: 18 MCG (18 MCG, 1 IN 1 D), IH
     Route: 055
     Dates: start: 20040101
  3. SPIRIVA [Suspect]
     Indication: LUNG NEOPLASM MALIGNANT
     Dosage: 18 MCG (18 MCG, 1 IN 1 D), IH
     Route: 055
     Dates: start: 20040101
  4. SPIRIVA [Suspect]
  5. POTKLOR XR (POTASSIUM CHLORIDE) [Concomitant]
  6. XANAX [Concomitant]
  7. FUROSEMIDE [Concomitant]
  8. OMEPRAZOLE [Concomitant]
  9. REGLAN [Concomitant]
  10. FLUOXETINE HCL (FLUOXETINE HYDROCHLORIDE) [Concomitant]
  11. MORPHINE SULFATE [Concomitant]

REACTIONS (7)
  - APHONIA [None]
  - BURNING SENSATION [None]
  - COUGH [None]
  - DRY THROAT [None]
  - DYSPNOEA [None]
  - LARYNGITIS [None]
  - THROAT TIGHTNESS [None]
